FAERS Safety Report 9456416 (Version 2)
Quarter: 2013Q3

REPORT INFORMATION
  Report Type: Spontaneous
  Country: FR (occurrence: None)
  Receive Date: 20130809
  Receipt Date: 20130819
  Transmission Date: 20140515
  Serious: Yes (Hospitalization)
  Sender: FDA-Public Use
  Company Number: DSM-2013-00726

PATIENT
  Age: 76 Year
  Sex: Female
  Weight: 62 kg

DRUGS (4)
  1. OLMETEC [Suspect]
     Indication: PRODUCT USED FOR UNKNOWN INDICATION
     Dosage: 40 MG, 1 IN 1 D
     Route: 048
     Dates: end: 2013
  2. CORDARONE [Concomitant]
  3. PREVISCAN [Concomitant]
  4. LEVOTHYROX [Concomitant]

REACTIONS (23)
  - Vomiting [None]
  - General physical health deterioration [None]
  - Dehydration [None]
  - Renal failure acute [None]
  - Diarrhoea [None]
  - Hyperthermia [None]
  - Hepatic steatosis [None]
  - Renal cyst [None]
  - Inflammation [None]
  - Haemoglobin decreased [None]
  - Blood albumin decreased [None]
  - Intestinal villi atrophy [None]
  - Colitis [None]
  - Drug ineffective [None]
  - Escherichia sepsis [None]
  - Urosepsis [None]
  - Metabolic acidosis [None]
  - Deep vein thrombosis [None]
  - Pelvic venous thrombosis [None]
  - International normalised ratio increased [None]
  - Cardiac failure [None]
  - Arrhythmia [None]
  - Atrial fibrillation [None]
